FAERS Safety Report 16688815 (Version 1)
Quarter: 2019Q4

REPORT INFORMATION
  Report Type: Spontaneous
  Country: US (occurrence: US)
  Receive Date: 20190809
  Receipt Date: 20190809
  Transmission Date: 20200122
  Serious: Yes (Death)
  Sender: FDA-Public Use
  Company Number: None

PATIENT
  Age: 57 Year
  Sex: Male
  Weight: 67.5 kg

DRUGS (4)
  1. MULTI VITAMIN [Concomitant]
     Active Substance: VITAMINS
  2. VITAMIN D [Concomitant]
     Active Substance: VITAMIN D NOS
  3. AMOXICILLIN 500 MG. [Suspect]
     Active Substance: AMOXICILLIN
     Indication: SINUSITIS
     Dosage: ?          QUANTITY:1 TABLET(S);?
     Route: 048
     Dates: start: 20180704, end: 20180801
  4. AIRBORNE [Concomitant]
     Active Substance: HERBALS\MINERALS\VITAMINS

REACTIONS (7)
  - Abdominal pain [None]
  - Vomiting [None]
  - Dialysis [None]
  - Nausea [None]
  - Weight decreased [None]
  - Diarrhoea [None]
  - Renal failure [None]

NARRATIVE: CASE EVENT DATE: 20180803
